FAERS Safety Report 10062541 (Version 3)
Quarter: 2014Q3

REPORT INFORMATION
  Report Type: Spontaneous
  Country: US (occurrence: US)
  Receive Date: 20140407
  Receipt Date: 20140905
  Transmission Date: 20150326
  Serious: Yes (Disabling)
  Sender: FDA-Public Use
  Company Number: US-FRI-1000066186

PATIENT
  Age: 58 Year
  Sex: Female

DRUGS (3)
  1. SAPHRIS [Suspect]
     Active Substance: ASENAPINE MALEATE
     Dosage: 5MG AM, 10MG PM
     Route: 060
     Dates: start: 20130918, end: 20130923
  2. SAPHRIS [Suspect]
     Active Substance: ASENAPINE MALEATE
     Indication: DEPRESSION
     Dosage: 5MG
     Route: 060
     Dates: start: 20130822, end: 20130903
  3. SAPHRIS [Suspect]
     Active Substance: ASENAPINE MALEATE
     Dosage: 10MG
     Route: 060
     Dates: start: 20130904, end: 20130917

REACTIONS (11)
  - Dysarthria [Not Recovered/Not Resolved]
  - Aphasia [Not Recovered/Not Resolved]
  - Fatigue [Not Recovered/Not Resolved]
  - Memory impairment [Not Recovered/Not Resolved]
  - Disturbance in attention [Not Recovered/Not Resolved]
  - Furuncle [Recovered/Resolved]
  - Tinnitus [Recovered/Resolved]
  - Rash macular [Recovered/Resolved]
  - Off label use [Recovered/Resolved]
  - Malaise [Unknown]
  - Urinary hesitation [Not Recovered/Not Resolved]

NARRATIVE: CASE EVENT DATE: 20130823
